FAERS Safety Report 4426070-2 (Version None)
Quarter: 2004Q3

REPORT INFORMATION
  Report Type: 
  Country: None (occurrence: None)
  Receive Date: 20040811
  Receipt Date: 20040726
  Transmission Date: 20050211
  Serious: Yes (Hospitalization)
  Sender: FDA-Public Use
  Company Number: 238348

PATIENT
  Age: 90 Year
  Sex: Male

DRUGS (6)
  1. NOVORAPID CHU  FLEXPEN (INSULIN  ASPART)SOLUTION FOR INJECTION, 100/ML [Suspect]
     Indication: INSULIN-REQUIRING TYPE II DIABETES MELLITUS
     Dosage: 10 IU TID SUBCUTANEOUS
     Route: 058
     Dates: start: 20030610, end: 20031016
  2. PREDONINE (PREDNSIOLONE) [Concomitant]
  3. BLOPRESS (CANDESARTAN CILEXETIL) [Concomitant]
  4. LAC B (LACTOBACILLUS BIFIDUS, LYOPHILIZED) [Concomitant]
  5. METHYCOBAL (MECOBALAMIN) [Concomitant]
  6. GLAKAY (MENATETRENONE) [Concomitant]

REACTIONS (4)
  - DECREASED APPETITE [None]
  - DEPRESSED LEVEL OF CONSCIOUSNESS [None]
  - HYPOGLYCAEMIA [None]
  - PNEUMONIA [None]
